FAERS Safety Report 8107490-1 (Version None)
Quarter: 2012Q1

REPORT INFORMATION
  Report Type: 
  Country: None (occurrence: None)
  Receive Date: 20120202
  Receipt Date: 20120127
  Transmission Date: 20120608
  Serious: Yes (Hospitalization)
  Sender: FDA-Public Use
  Company Number: US-SANOFI-AVENTIS-2012SA006096

PATIENT
  Sex: Female

DRUGS (4)
  1. SOLOSTAR [Suspect]
     Dates: start: 20120101
  2. LANTUS [Suspect]
     Indication: DIABETES MELLITUS
     Dosage: DOSE:76 UNIT(S)
     Route: 058
     Dates: start: 20100101
  3. LANTUS [Suspect]
     Dosage: DOSE:40 UNIT(S)
     Route: 058
     Dates: start: 20120101
  4. SOLOSTAR [Suspect]
     Indication: DIABETES MELLITUS
     Dates: start: 20100101

REACTIONS (2)
  - COLONIC POLYP [None]
  - TREMOR [None]
